FAERS Safety Report 17168439 (Version 1)
Quarter: 2019Q4

REPORT INFORMATION
  Report Type: Spontaneous
  Country: US (occurrence: US)
  Receive Date: 20191218
  Receipt Date: 20191218
  Transmission Date: 20200122
  Serious: No
  Sender: FDA-Public Use
  Company Number: US-KYOWAKIRIN-2018BKK011467

PATIENT

DRUGS (1)
  1. SANCUSO [Suspect]
     Active Substance: GRANISETRON
     Indication: PROPHYLAXIS OF NAUSEA AND VOMITING
     Dosage: PUT PATCH ON 24 HOURS BEFORE CHEMO AND LEAVE ON FOR AT LEAST 5 DAYS
     Route: 061

REACTIONS (3)
  - Intentional product misuse [Unknown]
  - Hypersensitivity [Unknown]
  - Drug ineffective [Unknown]
